FAERS Safety Report 12825987 (Version 1)
Quarter: 2016Q4

REPORT INFORMATION
  Report Type: Spontaneous
  Country: US (occurrence: US)
  Receive Date: 20161007
  Receipt Date: 20161007
  Transmission Date: 20170207
  Serious: No
  Sender: FDA-Public Use
  Company Number: US-ACTAVISPR-2015-22749

PATIENT
  Age: 52 Year
  Sex: Female

DRUGS (1)
  1. FENTANYL-50 (WATSON LABORATORIES) [Suspect]
     Active Substance: FENTANYL
     Indication: CANCER PAIN
     Dosage: 50 MCG/HR, EVERY 3 DAYS
     Route: 062
     Dates: start: 201509

REACTIONS (1)
  - Drug ineffective [Not Recovered/Not Resolved]
